FAERS Safety Report 11604237 (Version 1)
Quarter: 2015Q4

REPORT INFORMATION
  Report Type: Spontaneous
  Country: US (occurrence: None)
  Receive Date: 20151006
  Receipt Date: 20151006
  Transmission Date: 20160304
  Serious: Yes (Hospitalization)
  Sender: FDA-Public Use
  Company Number: None

PATIENT
  Age: 69 Year
  Sex: Male

DRUGS (1)
  1. CLOBAZAM [Suspect]
     Active Substance: CLOBAZAM
     Indication: SEIZURE
     Dosage: OTHER
     Route: 048
     Dates: start: 20140411

REACTIONS (8)
  - Fall [None]
  - Decreased appetite [None]
  - Neuropathy peripheral [None]
  - Gait disturbance [None]
  - Seizure [None]
  - Balance disorder [None]
  - Hypophagia [None]
  - Orthostatic hypotension [None]

NARRATIVE: CASE EVENT DATE: 20150915
